FAERS Safety Report 9323380 (Version 9)
Quarter: 2014Q2

REPORT INFORMATION
  Report Type: Spontaneous
  Country: US (occurrence: US)
  Receive Date: 20130603
  Receipt Date: 20140423
  Transmission Date: 20141212
  Serious: Yes (Hospitalization, Other)
  Sender: FDA-Public Use
  Company Number: US-009507513-1306USA000118

PATIENT
  Age: 49 Year
  Sex: Female
  Weight: 62.13 kg

DRUGS (15)
  1. PEGINTRON [Suspect]
     Indication: HEPATITIS C
     Dosage: UNK, REDIPEN, 150/5MCG/ML
     Route: 058
     Dates: start: 20130523, end: 20131107
  2. REBETOL [Suspect]
     Indication: HEPATITIS C
     Dosage: 1 PILL, BID (TWICE A DAY)
     Route: 048
     Dates: start: 20130523, end: 20131107
  3. DILANTIN [Concomitant]
     Indication: CONVULSION
     Dosage: 1 DF, TID
  4. SEROQUEL [Concomitant]
     Dosage: 1 DF, QD
  5. KEPPRA [Concomitant]
     Dosage: 1 DF, BID
  6. TEGRETOL [Concomitant]
     Dosage: 1 DF, TID
  7. PRILOSEC [Concomitant]
     Dosage: 1 DF, QD
  8. SINGULAIR [Concomitant]
     Dosage: 1 DF, QD
     Route: 048
  9. XANAX [Concomitant]
     Dosage: 1 DF, QID
  10. SPIRIVA [Concomitant]
     Dosage: 1 INHALATION, QD
     Route: 055
  11. PROAIR HFA [Concomitant]
     Dosage: 2 PUFFS, AS NEEDED
     Route: 055
  12. PROMETHAZINE [Concomitant]
     Dosage: 1 DF, QID PRN
  13. ABILIFY [Concomitant]
     Dosage: 1 DF, QD
  14. ALBUTEROL SULFATE [Concomitant]
     Dosage: NEBULIZED TREATMENT, 1 VIAL EVERY 4 HOURS AS NEEDED
     Route: 055
  15. NORCO [Concomitant]
     Dosage: 1 DF, FOUR TIMES A DAY, AS NEEDED

REACTIONS (38)
  - Cardiac failure congestive [Unknown]
  - Chronic obstructive pulmonary disease [Unknown]
  - Bronchitis [Unknown]
  - Pneumonia [Unknown]
  - Weight decreased [Not Recovered/Not Resolved]
  - Vomiting [Not Recovered/Not Resolved]
  - Skin disorder [Unknown]
  - Back pain [Unknown]
  - Dysarthria [Unknown]
  - Thirst [Unknown]
  - Erythema [Unknown]
  - Nausea [Not Recovered/Not Resolved]
  - Pruritus [Unknown]
  - Injection site erythema [Unknown]
  - Dehydration [Unknown]
  - Pyrexia [Unknown]
  - Pain [Unknown]
  - Arthralgia [Unknown]
  - Pruritus [Recovering/Resolving]
  - Feeling cold [Unknown]
  - Chills [Unknown]
  - Pyrexia [Unknown]
  - Movement disorder [Unknown]
  - Decreased appetite [Not Recovered/Not Resolved]
  - Rash [Recovering/Resolving]
  - Rash pruritic [Unknown]
  - Malaise [Not Recovered/Not Resolved]
  - Irritability [Unknown]
  - Mood altered [Unknown]
  - Localised infection [Unknown]
  - Skin fissures [Recovering/Resolving]
  - Hyperhidrosis [Unknown]
  - Lymphatic disorder [Unknown]
  - Blood disorder [Unknown]
  - Therapeutic response decreased [Unknown]
  - Inappropriate schedule of drug administration [Unknown]
  - Viral load increased [Unknown]
  - Memory impairment [Unknown]
